FAERS Safety Report 10106473 (Version 2)
Quarter: 2014Q2

REPORT INFORMATION
  Report Type: Other
  Country: US (occurrence: US)
  Receive Date: 20140424
  Receipt Date: 20140621
  Transmission Date: 20141212
  Serious: Yes (Hospitalization, Other)
  Sender: FDA-Public Use
  Company Number: US-GSKPPD-2014GSK000760

PATIENT
  Age: 58 Year
  Sex: Male

DRUGS (5)
  1. AVANDIA [Suspect]
     Indication: DIABETES MELLITUS
     Route: 048
     Dates: start: 2000, end: 2001
  2. ASPIRIN [Concomitant]
     Route: 048
     Dates: start: 200111
  3. LISINOPRIL [Concomitant]
     Route: 048
     Dates: start: 200401
  4. ZOCOR [Concomitant]
     Route: 048
     Dates: start: 200401
  5. PLAVIX [Concomitant]
     Route: 048
     Dates: start: 200401

REACTIONS (2)
  - Myocardial infarction [None]
  - Coronary artery disease [Recovered/Resolved]
